FAERS Safety Report 18055815 (Version 1)
Quarter: 2020Q3

REPORT INFORMATION
  Report Type: Report from Study
  Country: US (occurrence: US)
  Receive Date: 20200722
  Receipt Date: 20200722
  Transmission Date: 20201103
  Serious: Yes (Hospitalization)
  Sender: FDA-Public Use
  Company Number: US-ACTELION-A-NJ2019-199528

PATIENT
  Sex: Female
  Weight: 90.7 kg

DRUGS (3)
  1. TADALAFIL. [Concomitant]
     Active Substance: TADALAFIL
  2. OPSUMIT [Suspect]
     Active Substance: MACITENTAN
     Indication: PULMONARY ARTERIAL HYPERTENSION
     Dosage: 10 MG, QD
     Route: 048
  3. DILTIAZEM. [Concomitant]
     Active Substance: DILTIAZEM

REACTIONS (11)
  - Pulmonary congestion [Unknown]
  - Palpitations [Unknown]
  - Aspiration [Unknown]
  - Heart rate increased [Unknown]
  - Dyspnoea exertional [Unknown]
  - Fluid retention [Unknown]
  - Oedema [Unknown]
  - Pneumonia [Unknown]
  - Dyspnoea at rest [Unknown]
  - Peripheral swelling [Unknown]
  - Atrial fibrillation [Unknown]
